FAERS Safety Report 5691203-7 (Version None)
Quarter: 2008Q2

REPORT INFORMATION
  Report Type: 
  Country: None (occurrence: None)
  Receive Date: 20080402
  Receipt Date: 20080325
  Transmission Date: 20081010
  Serious: Yes (Other)
  Sender: FDA-Public Use
  Company Number: US-WYE-H03282808

PATIENT
  Age: 37 Year
  Sex: Male
  Weight: 110.78 kg

DRUGS (1)
  1. PREPARATION H COOLING [Suspect]
     Indication: HAEMORRHOIDS
     Dosage: ONE APPLICATION PER DAY
     Route: 061
     Dates: start: 20080322, end: 20080322

REACTIONS (4)
  - APPLICATION SITE HYPERSENSITIVITY [None]
  - APPLICATION SITE IRRITATION [None]
  - APPLICATION SITE PRURITUS [None]
  - APPLICATION SITE RASH [None]
